FAERS Safety Report 25640535 (Version 2)
Quarter: 2025Q3

REPORT INFORMATION
  Report Type: Report from Study
  Country: US (occurrence: US)
  Receive Date: 20250804
  Receipt Date: 20250815
  Transmission Date: 20251021
  Serious: Yes (Hospitalization, Other)
  Sender: INCYTE
  Company Number: US-EVENT-003578

PATIENT
  Age: 82 Year

DRUGS (9)
  1. JAKAFI [Suspect]
     Active Substance: RUXOLITINIB
     Indication: Myelofibrosis
     Dosage: 5 MILLIGRAM, BID
  2. JAKAFI [Suspect]
     Active Substance: RUXOLITINIB
     Dosage: 5 MILLIGRAM, BID
  3. VITAMIN D3 [Concomitant]
     Active Substance: CHOLECALCIFEROL
     Indication: Product used for unknown indication
     Dosage: 250 MICROGRAM, QD (10,000 UNIT)
  4. TRICOR [Concomitant]
     Active Substance: FENOFIBRATE
     Indication: Product used for unknown indication
  5. FOSAMAX [Concomitant]
     Active Substance: ALENDRONATE SODIUM
     Indication: Product used for unknown indication
     Dosage: 70 MILLIGRAM, QD (30 MINUTES BEFORE THE FIRST FOOD, BEVERAGE OR MEDICINE OF THE DAY WITH PLAIN WATER)
  6. LOKELMA [SODIUM ZIRCONIUM CYCLOSILICATE] [Concomitant]
     Indication: Product used for unknown indication
     Dosage: 10 GRAM, QD
  7. KAYEXALATE [Concomitant]
     Active Substance: SODIUM POLYSTYRENE SULFONATE
     Indication: Product used for unknown indication
     Dosage: 30 GRAM, QD FOR 3 DAYS, MIX WITH 4OZ WATER
  8. KENALOG [Concomitant]
     Active Substance: TRIAMCINOLONE ACETONIDE
     Indication: Product used for unknown indication
     Dosage: 0.1 PERCENT, 2X/WEEK (APPLY TOPICALLY TO THE AFFECTED AREA)
  9. VELTASSA [Concomitant]
     Active Substance: PATIROMER
     Indication: Product used for unknown indication

REACTIONS (52)
  - Sepsis [Unknown]
  - Pneumonitis [Unknown]
  - Aspiration [Unknown]
  - Acute respiratory failure [Unknown]
  - Encephalopathy [Not Recovered/Not Resolved]
  - Mental status changes [Not Recovered/Not Resolved]
  - Organ failure [Unknown]
  - Cardiac failure congestive [Not Recovered/Not Resolved]
  - Renal disorder [Unknown]
  - Acute kidney injury [Not Recovered/Not Resolved]
  - Deep vein thrombosis [Not Recovered/Not Resolved]
  - Chronic kidney disease [Unknown]
  - Hepatic cirrhosis [Unknown]
  - Pemphigus [Unknown]
  - Thrombocytopenia [Not Recovered/Not Resolved]
  - Pneumonia [Not Recovered/Not Resolved]
  - Atrial fibrillation [Not Recovered/Not Resolved]
  - Thrombosis [Unknown]
  - Post procedural complication [Unknown]
  - Essential hypertension [Not Recovered/Not Resolved]
  - Hyponatraemia [Not Recovered/Not Resolved]
  - Oedema peripheral [Not Recovered/Not Resolved]
  - Carbon dioxide abnormal [Unknown]
  - Blood glucose abnormal [Unknown]
  - Blood calcium abnormal [Unknown]
  - Blood bilirubin abnormal [Unknown]
  - Blood alkaline phosphatase abnormal [Unknown]
  - White blood cell count abnormal [Unknown]
  - Haemoglobin abnormal [Unknown]
  - Haematocrit abnormal [Unknown]
  - Blood potassium abnormal [Unknown]
  - Blood chloride abnormal [Unknown]
  - Blood albumin abnormal [Unknown]
  - Protein total abnormal [Unknown]
  - Blood creatine phosphokinase decreased [Unknown]
  - Activated partial thromboplastin time abnormal [Unknown]
  - International normalised ratio abnormal [Unknown]
  - Alanine aminotransferase abnormal [Unknown]
  - Aspartate aminotransferase abnormal [Unknown]
  - Pleural effusion [Unknown]
  - Coronary artery disease [Unknown]
  - Splenomegaly [Unknown]
  - Pyrexia [Unknown]
  - Dysphagia [Unknown]
  - Pain [Unknown]
  - Vomiting [Unknown]
  - Dyslipidaemia [Unknown]
  - Agitation [Unknown]
  - Confusional state [Unknown]
  - Disorientation [Unknown]
  - Blood triglycerides increased [Unknown]
  - Nausea [Unknown]
